FAERS Safety Report 6825246-4 (Version None)
Quarter: 2010Q3

REPORT INFORMATION
  Report Type: 
  Country: None (occurrence: None)
  Receive Date: 20100708
  Receipt Date: 20061228
  Transmission Date: 20110219
  Serious: No
  Sender: FDA-Public Use
  Company Number: US-PFIZER INC-2007001408

PATIENT
  Sex: Female

DRUGS (4)
  1. CHANTIX [Suspect]
     Indication: SMOKING CESSATION THERAPY
     Dates: start: 20061201, end: 20061201
  2. PAXIL [Concomitant]
  3. LITHIUM CARBONATE [Concomitant]
  4. CALCIUM CARBONATE [Concomitant]

REACTIONS (2)
  - BLOOD OESTROGEN DECREASED [None]
  - VOMITING [None]
